FAERS Safety Report 20850492 (Version 1)
Quarter: 2022Q2

REPORT INFORMATION
  Report Type: Spontaneous
  Country: US (occurrence: US)
  Receive Date: 20220519
  Receipt Date: 20220519
  Transmission Date: 20220721
  Serious: No
  Sender: FDA-Public Use
  Company Number: US-PFIZER INC-202200690368

PATIENT
  Age: 21 Year
  Sex: Female

DRUGS (1)
  1. IBRANCE [Suspect]
     Active Substance: PALBOCICLIB
     Indication: Pleomorphic malignant fibrous histiocytoma
     Dosage: UNK

REACTIONS (3)
  - Neoplasm progression [Unknown]
  - Disease recurrence [Unknown]
  - Off label use [Unknown]
